FAERS Safety Report 10637919 (Version 3)
Quarter: 2015Q1

REPORT INFORMATION
  Report Type: Spontaneous
  Country: US (occurrence: US)
  Receive Date: 20141208
  Receipt Date: 20150106
  Transmission Date: 20150720
  Serious: No
  Sender: FDA-Public Use
  Company Number: US-GLAXOSMITHKLINE-US2014GSK032249

PATIENT
  Age: 63 Year
  Sex: Female

DRUGS (1)
  1. VOTRIENT [Suspect]
     Active Substance: PAZOPANIB HYDROCHLORIDE
     Indication: RENAL CANCER
     Dosage: 800 MG, QD
     Route: 048
     Dates: start: 201409

REACTIONS (7)
  - Sinus disorder [Unknown]
  - Epistaxis [Unknown]
  - Dysphagia [Unknown]
  - Adverse drug reaction [Unknown]
  - Headache [Unknown]
  - Hypophagia [Unknown]
  - Oral pain [Unknown]

NARRATIVE: CASE EVENT DATE: 20141006
